FAERS Safety Report 9222368 (Version 1)
Quarter: 2013Q1

REPORT INFORMATION
  Report Type: Spontaneous
  Country: US (occurrence: None)
  Receive Date: 20120914
  Receipt Date: 20120914
  Transmission Date: 20140127
  Serious: Yes (Hospitalization, Other)
  Sender: FDA-Public Use
  Company Number: JPI-P-015071

PATIENT
  Age: 56 Year
  Sex: Female
  Weight: 80.74 kg

DRUGS (14)
  1. XYREM [Suspect]
     Indication: NARCOLEPSY
     Route: 048
     Dates: start: 20110330
  2. XYREM [Suspect]
     Indication: SOMNOLENCE
     Route: 048
     Dates: start: 20110330
  3. PROGESTERONE [Suspect]
     Indication: HORMONE REPLACEMENT THERAPY
  4. ESSENTIAL OILS [Suspect]
     Indication: PRODUCT USED FOR UNKNOWN INDICATION
     Dates: end: 201106
  5. L-METHYLFOLATE/VITAMIN B6 AND B12 [Concomitant]
  6. ROSUVASTATIN CALCIUM [Concomitant]
  7. LITHIUM [Concomitant]
  8. SPIRONOLACTONE [Concomitant]
  9. OMEPRAZOLE [Concomitant]
  10. ARMOUR THYROID [Concomitant]
  11. FLUCONAZOLE [Concomitant]
  12. NITROFURANTOIN [Concomitant]
  13. ATOMOXETINE [Concomitant]
  14. CIPROFLOXACIN [Concomitant]

REACTIONS (10)
  - Blood pressure increased [None]
  - Weight decreased [None]
  - Hypoaesthesia [None]
  - Anxiety [None]
  - Blood glucose abnormal [None]
  - Feeling of body temperature change [None]
  - Nausea [None]
  - Myalgia [None]
  - Dizziness [None]
  - Balance disorder [None]
